FAERS Safety Report 6588073 (Version 12)
Quarter: 2013Q4

REPORT INFORMATION
  Report Type: Spontaneous
  Country: US (occurrence: US)
  Receive Date: 20080319
  Receipt Date: 20131103
  Transmission Date: 20140711
  Serious: Yes (Death, Hospitalization, Other)
  Sender: FDA-Public Use
  Company Number: PHEH2008US02665

PATIENT
  Age: 77 Year
  Sex: Female
  Weight: 39.37 kg

DRUGS (36)
  1. AREDIA [Suspect]
     Indication: BONE PAIN
  2. ZOMETA [Suspect]
     Indication: BONE PAIN
  3. COUMADIN ^BOOTS^ [Concomitant]
  4. DECADRAN [Concomitant]
  5. CELEXA [Concomitant]
  6. DETROL [Concomitant]
  7. GLYCOPYRROLATE [Concomitant]
     Dosage: 1 MG, QD
     Route: 048
     Dates: start: 20080804
  8. EVISTA [Concomitant]
     Dosage: 60 MG, QD
     Route: 048
  9. REMERON [Concomitant]
     Dosage: 30 MG, QD
     Route: 048
  10. ASPIRIN ^BAYER^ [Concomitant]
     Dosage: 81 MG, QD
     Route: 048
  11. CALCIUM [Concomitant]
     Dosage: 500 MG, QD
     Route: 048
  12. VICODIN [Concomitant]
     Route: 048
  13. CLONAZEPAM [Concomitant]
     Dosage: 0.5 MG, PRN
     Route: 048
  14. OXYCODONE [Concomitant]
     Dosage: 5 MG, PRN
     Route: 048
  15. FENTANYL [Concomitant]
     Dosage: 100 UG
     Route: 062
  16. ROZEREM [Concomitant]
     Dosage: 8 MG, PRN
     Route: 048
  17. LEXAPRO [Concomitant]
     Dosage: 200 MG, QD
     Route: 048
  18. NEXIUM [Concomitant]
     Dosage: 40 MG, QD
     Route: 048
  19. MEROPENEM [Concomitant]
     Dosage: 1 G, BID
     Dates: start: 20071223
  20. VANCOMYCIN [Concomitant]
     Dosage: 750 MG, QD
     Dates: start: 20071223
  21. PREDNISONE [Concomitant]
     Route: 048
     Dates: start: 20010409
  22. PAMIDRONATE DISODIUM [Concomitant]
     Route: 048
     Dates: start: 20010409
  23. NORCO [Concomitant]
     Route: 048
     Dates: start: 20010409
  24. AMBIEN [Concomitant]
     Dosage: 50 MG,
     Route: 048
  25. OXYCONTIN [Concomitant]
     Route: 048
     Dates: start: 20010409
  26. Z-PAK [Concomitant]
     Route: 048
     Dates: start: 20060123
  27. DITROPAN                                /SCH/ [Concomitant]
     Dosage: 10 MG,
     Route: 048
     Dates: start: 20060123
  28. ADRIAMYCIN [Concomitant]
     Dates: start: 20060220
  29. CIPRO ^MILES^ [Concomitant]
     Route: 048
  30. PROTONIX ^PHARMACIA^ [Concomitant]
     Dosage: 40 MG, QD
     Route: 048
  31. AVINZA [Concomitant]
     Route: 048
  32. THALIDOMIDE [Concomitant]
     Dosage: 10 MG,
     Route: 048
  33. CHLORAMBUCIL [Concomitant]
  34. MELPHALAN [Concomitant]
  35. VINCRISTINE [Concomitant]
  36. MEGACE [Concomitant]
     Dosage: 40 MG, QID

REACTIONS (113)
  - Death [Fatal]
  - Acute respiratory failure [Unknown]
  - Dyspnoea [Not Recovered/Not Resolved]
  - Hypoxia [Unknown]
  - Pneumonia aspiration [Recovered/Resolved]
  - Pneumonia streptococcal [Unknown]
  - Staphylococcal bacteraemia [Unknown]
  - Cellulitis [Unknown]
  - Bacterial disease carrier [Unknown]
  - Deep vein thrombosis [Unknown]
  - Hypovolaemic shock [Unknown]
  - Mental status changes [Unknown]
  - Depression [Unknown]
  - Anxiety [Unknown]
  - Spinal compression fracture [Unknown]
  - Back pain [Unknown]
  - Urinary tract infection [Recovered/Resolved]
  - Urinary incontinence [Unknown]
  - Gastrointestinal haemorrhage [Unknown]
  - Osteonecrosis of jaw [Not Recovered/Not Resolved]
  - Injury [Unknown]
  - Disability [Unknown]
  - Pain [Unknown]
  - Dental caries [Unknown]
  - Bone disorder [Unknown]
  - Mastication disorder [Unknown]
  - Pain in jaw [Not Recovered/Not Resolved]
  - Dental fistula [Unknown]
  - Denture wearer [Unknown]
  - Bone lesion [Unknown]
  - Purulent discharge [Unknown]
  - Bone swelling [Not Recovered/Not Resolved]
  - Fistula discharge [Unknown]
  - Oral candidiasis [Unknown]
  - Weight decreased [Unknown]
  - Nausea [Unknown]
  - Extravasation [Unknown]
  - Diarrhoea [Unknown]
  - Asthenia [Unknown]
  - Night sweats [Unknown]
  - Vomiting [Unknown]
  - Anaemia [Unknown]
  - Tongue movement disturbance [Unknown]
  - Osteomyelitis [Unknown]
  - Swelling face [Unknown]
  - Poor peripheral circulation [Unknown]
  - Wound [Unknown]
  - Hypoaesthesia [Unknown]
  - Gastrooesophageal reflux disease [Unknown]
  - Atelectasis [Recovering/Resolving]
  - Cardiac murmur [Unknown]
  - Pleural effusion [Unknown]
  - Leukocytosis [Unknown]
  - Gait disturbance [Unknown]
  - Hypertension [Unknown]
  - Dysphagia [Unknown]
  - Insomnia [Unknown]
  - Fear [Unknown]
  - Nasal oedema [Unknown]
  - Lip and/or oral cavity cancer stage 0 [Unknown]
  - Humerus fracture [Recovered/Resolved]
  - Bone deformity [Recovered/Resolved]
  - Aortic arteriosclerosis [Unknown]
  - Aortic calcification [Unknown]
  - Chronic obstructive pulmonary disease [Unknown]
  - Vertebral osteophyte [Unknown]
  - Emphysema [Unknown]
  - Pulmonary granuloma [Recovered/Resolved]
  - Pulmonary calcification [Recovered/Resolved]
  - Arteriosclerosis [Unknown]
  - Vascular calcification [Unknown]
  - Infection [Unknown]
  - Muscular weakness [Unknown]
  - Fall [Unknown]
  - Spinal osteoarthritis [Unknown]
  - Constipation [Unknown]
  - Asterixis [Unknown]
  - Swollen tongue [Unknown]
  - Lung infiltration [Unknown]
  - Renal failure acute [Unknown]
  - Decubitus ulcer [Recovered/Resolved]
  - Pneumonia [Recovered/Resolved]
  - Aortic valve incompetence [Unknown]
  - Mitral valve incompetence [Unknown]
  - Gastroenteritis [Unknown]
  - Cataract [Unknown]
  - Neuropathy peripheral [Unknown]
  - Arthritis [Unknown]
  - Intervertebral disc protrusion [Unknown]
  - Pathological fracture [Unknown]
  - Lymphadenopathy [Unknown]
  - Gastritis atrophic [Unknown]
  - Melaena [Unknown]
  - Stomatitis [Unknown]
  - Staphylococcal infection [Unknown]
  - Arthropathy [Unknown]
  - Intervertebral disc space narrowing [Unknown]
  - Cancer pain [Unknown]
  - Epistaxis [Recovered/Resolved]
  - Pulmonary fibrosis [Unknown]
  - Hyperkeratosis [Unknown]
  - Bursitis [Unknown]
  - Onychomycosis [Unknown]
  - Bone cancer [Unknown]
  - Peripheral vascular disorder [Unknown]
  - Lymphoma [Unknown]
  - Gangrene [Unknown]
  - Mitral valve calcification [Unknown]
  - Drooling [Unknown]
  - Paralysis [Unknown]
  - Electrocardiogram QT prolonged [Unknown]
  - Electrocardiogram T wave inversion [Unknown]
  - Electrocardiogram ST segment elevation [Unknown]
